FAERS Safety Report 13192608 (Version 1)
Quarter: 2017Q1

REPORT INFORMATION
  Report Type: Spontaneous
  Country: FR (occurrence: FR)
  Receive Date: 20170207
  Receipt Date: 20170207
  Transmission Date: 20170428
  Serious: Yes (Hospitalization, Other)
  Sender: FDA-Public Use
  Company Number: FR-PFIZER INC-2017049365

PATIENT
  Age: 74 Year
  Sex: Male

DRUGS (14)
  1. URAPIDIL [Interacting]
     Active Substance: URAPIDIL
     Indication: HYPERTENSION
     Dosage: 60 MG, 2X/DAY
     Route: 048
  2. BISOPROLOL FUMARATE. [Interacting]
     Active Substance: BISOPROLOL FUMARATE
     Indication: HYPERTENSION
     Dosage: 10 MG, 2X/DAY
     Route: 048
  3. ALLOPURINOL. [Interacting]
     Active Substance: ALLOPURINOL
     Dosage: 200 MG, 1X/DAY
     Route: 048
     Dates: start: 20160926
  4. NEORAL [Interacting]
     Active Substance: CYCLOSPORINE
     Indication: RENAL TRANSPLANT
     Dosage: 50 MG, 2X/DAY
     Route: 048
  5. BISOPROLOL FUMARATE. [Interacting]
     Active Substance: BISOPROLOL FUMARATE
     Dosage: 10 MG, 2X/DAY
     Route: 048
  6. PREDNISOLONE. [Interacting]
     Active Substance: PREDNISOLONE
     Indication: RENAL TRANSPLANT
     Dosage: 10 MG, 1X/DAY
     Route: 048
     Dates: end: 20160919
  7. IRBESARTAN. [Interacting]
     Active Substance: IRBESARTAN
     Indication: HYPERTENSION
     Dosage: 300 MG, 1X/DAY
     Route: 048
     Dates: end: 20160919
  8. LERCANIDIPINE HYDROCHLORIDE [Interacting]
     Active Substance: LERCANIDIPINE HYDROCHLORIDE
     Indication: HYPERTENSION
     Dosage: 10 MG, 1X/DAY
     Route: 048
  9. AMIODARONE HCL [Suspect]
     Active Substance: AMIODARONE HYDROCHLORIDE
     Indication: ATRIAL FIBRILLATION
     Dosage: 200 MG, 1X/DAY
     Route: 048
  10. AMIODARONE HCL [Interacting]
     Active Substance: AMIODARONE HYDROCHLORIDE
     Dosage: 200 MG, 1X/DAY
     Route: 048
  11. PREVISCAN [Interacting]
     Active Substance: FLUINDIONE
     Indication: ATRIAL FIBRILLATION
     Dosage: 10 MG, 1X/DAY
     Route: 048
     Dates: end: 20160919
  12. IRBESARTAN. [Interacting]
     Active Substance: IRBESARTAN
     Dosage: 300 MG, 1X/DAY
     Route: 048
     Dates: start: 20160926
  13. ALLOPURINOL. [Interacting]
     Active Substance: ALLOPURINOL
     Indication: GOUT
     Dosage: 200 MG, 1X/DAY
     Route: 048
     Dates: end: 20160919
  14. PREVISCAN [Interacting]
     Active Substance: FLUINDIONE
     Dosage: 10 MG, 1X/DAY
     Route: 048
     Dates: start: 20160926

REACTIONS (8)
  - Retroperitoneal haematoma [Unknown]
  - Pancreatitis [Recovered/Resolved]
  - Pancreatitis [Recovered/Resolved]
  - Bacteraemia [Unknown]
  - Aneurysm [Unknown]
  - Labelled drug-drug interaction medication error [Unknown]
  - Arterial haemorrhage [Unknown]
  - International normalised ratio increased [Unknown]

NARRATIVE: CASE EVENT DATE: 201609
